FAERS Safety Report 9116339 (Version 1)
Quarter: 2013Q1

REPORT INFORMATION
  Report Type: Spontaneous
  Country: DE (occurrence: DE)
  Receive Date: 20130225
  Receipt Date: 20130225
  Transmission Date: 20140127
  Serious: Yes (Other)
  Sender: FDA-Public Use
  Company Number: DE-B.I. PHARMACEUTICALS,INC./RIDGEFIELD-2013-DE-00421DE

PATIENT
  Age: 57 Year
  Sex: Male

DRUGS (1)
  1. SIFROL [Suspect]
     Indication: RESTLESS LEGS SYNDROME
     Dosage: DAILY DOSE: 1.08 - 1.42

REACTIONS (2)
  - Theft [Unknown]
  - Impulse-control disorder [Unknown]
